FAERS Safety Report 5356238-2 (Version None)
Quarter: 2007Q2

REPORT INFORMATION
  Report Type: 
  Country: None (occurrence: None)
  Receive Date: 20070613
  Receipt Date: 20070601
  Transmission Date: 20071010
  Serious: Yes (Other)
  Sender: FDA-Public Use
  Company Number: CA-PFIZER INC-2007043449

PATIENT
  Age: 23 Year
  Sex: Female

DRUGS (1)
  1. LYRICA [Suspect]
     Indication: PAIN
     Dosage: DAILY DOSE:1500MG-FREQ:DAILY
     Route: 048

REACTIONS (4)
  - DEAFNESS [None]
  - DRUG WITHDRAWAL SYNDROME [None]
  - INTENTIONAL DRUG MISUSE [None]
  - SPEECH DISORDER [None]
